FAERS Safety Report 25924865 (Version 2)
Quarter: 2025Q4

REPORT INFORMATION
  Report Type: Spontaneous
  Country: CA (occurrence: CA)
  Receive Date: 20251015
  Receipt Date: 20251023
  Transmission Date: 20260118
  Serious: Yes (Other)
  Sender: PFIZER
  Company Number: CA-PFIZER INC-202500203574

PATIENT
  Age: 66 Year
  Sex: Female

DRUGS (3)
  1. IXIFI [Suspect]
     Active Substance: INFLIXIMAB-QBTX
     Indication: Ankylosing spondylitis
     Dosage: EVERY 6 WEEKS, RAPID
     Route: 042
     Dates: start: 20250618
  2. IXIFI [Suspect]
     Active Substance: INFLIXIMAB-QBTX
     Dosage: EVERY 6 WEEKS, RAPID
     Route: 042
     Dates: start: 20250903, end: 2025
  3. SULFASALAZINE [Concomitant]
     Active Substance: SULFASALAZINE
     Dosage: UNK

REACTIONS (2)
  - Cataract [Recovering/Resolving]
  - Immune system disorder [Unknown]

NARRATIVE: CASE EVENT DATE: 20250101
